FAERS Safety Report 9029469 (Version 2)
Quarter: 2013Q2

REPORT INFORMATION
  Report Type: Report from Study
  Country: BR (occurrence: BR)
  Receive Date: 20130125
  Receipt Date: 20130520
  Transmission Date: 20140414
  Serious: Yes (Other)
  Sender: FDA-Public Use
  Company Number: BR-ABBOTT-13P-020-1040578-00

PATIENT
  Age: 64 Year
  Sex: Female
  Weight: 52 kg

DRUGS (11)
  1. HUMIRA [Suspect]
     Indication: RHEUMATOID ARTHRITIS
     Route: 058
     Dates: start: 20121217
  2. DEFLAZACORT [Concomitant]
     Indication: RHEUMATOID ARTHRITIS
     Dosage: 1 TAB DAILY
     Route: 048
     Dates: start: 200901
  3. ANAFRANIL [Concomitant]
     Indication: ANTIDEPRESSANT THERAPY
     Route: 048
  4. OLCADIL [Concomitant]
     Indication: ANXIETY
     Route: 048
  5. SIMVASTATIN [Concomitant]
     Indication: BLOOD CHOLESTEROL
     Route: 048
  6. OMEPRAZOLE [Concomitant]
     Indication: PROPHYLAXIS
     Route: 048
  7. OMEPRAZOLE [Concomitant]
     Indication: GASTRIC DISORDER
  8. CAL D [Concomitant]
     Indication: RHEUMATOID ARTHRITIS
     Route: 048
  9. CHOLECALCIFEROL [Concomitant]
     Indication: RHEUMATOID ARTHRITIS
     Dosage: 25 DROPS DAILY
     Route: 048
     Dates: start: 201211
  10. LAMITOR [Concomitant]
     Indication: DEPRESSION
     Dates: start: 20130510
  11. HALDOL [Concomitant]
     Indication: DEPRESSION
     Dates: start: 20130510

REACTIONS (4)
  - Jaw disorder [Recovered/Resolved]
  - Hypertension [Recovered/Resolved]
  - Chest pain [Not Recovered/Not Resolved]
  - Erythema [Recovered/Resolved]
